FAERS Safety Report 6421530-7 (Version None)
Quarter: 2009Q4

REPORT INFORMATION
  Report Type: 
  Country: None (occurrence: None)
  Receive Date: 20091030
  Receipt Date: 20091027
  Transmission Date: 20100525
  Serious: Yes (Other)
  Sender: FDA-Public Use
  Company Number: US-WYE-H11864509

PATIENT
  Weight: 3.6 kg

DRUGS (1)
  1. ZOSYN [Suspect]
     Indication: DRUG USE FOR UNKNOWN INDICATION
     Dosage: UNKNOWN
     Route: 042

REACTIONS (1)
  - HEPATIC ENZYME INCREASED [None]
